FAERS Safety Report 8171951-X (Version None)
Quarter: 2012Q1

REPORT INFORMATION
  Report Type: 
  Country: None (occurrence: None)
  Receive Date: 20120228
  Receipt Date: 20120227
  Transmission Date: 20120608
  Serious: Yes (Other)
  Sender: FDA-Public Use
  Company Number: US-PFIZER INC-2012051603

PATIENT
  Sex: Male

DRUGS (1)
  1. NICOTROL [Suspect]
     Dosage: UNK
     Route: 045

REACTIONS (2)
  - COELIAC DISEASE [None]
  - ANTIBODY TEST ABNORMAL [None]
